FAERS Safety Report 23696092 (Version 1)
Quarter: 2024Q2

REPORT INFORMATION
  Report Type: Spontaneous
  Country: US (occurrence: US)
  Receive Date: 20240402
  Receipt Date: 20240402
  Transmission Date: 20240716
  Serious: Yes (Other)
  Sender: FDA-Public Use
  Company Number: US-ABBVIE-5699829

PATIENT
  Sex: Female

DRUGS (1)
  1. HUMIRA [Suspect]
     Active Substance: ADALIMUMAB
     Indication: Product used for unknown indication
     Route: 058

REACTIONS (9)
  - Cataract [Unknown]
  - Coronary artery disease [Unknown]
  - Cough [Unknown]
  - Swelling [Not Recovered/Not Resolved]
  - Asthenia [Unknown]
  - Therapeutic product effect decreased [Unknown]
  - Fatigue [Unknown]
  - Ophthalmoplegia [Unknown]
  - Dry mouth [Unknown]
